FAERS Safety Report 10908693 (Version 2)
Quarter: 2015Q1

REPORT INFORMATION
  Report Type: Spontaneous
  Country: NO (occurrence: NO)
  Receive Date: 20150312
  Receipt Date: 20150313
  Transmission Date: 20150721
  Serious: Yes (Death, Life-Threatening, Hospitalization)
  Sender: FDA-Public Use
  Company Number: NO-PFIZER INC-2015089021

PATIENT
  Sex: Male

DRUGS (1)
  1. CORDARONE [Suspect]
     Active Substance: AMIODARONE HYDROCHLORIDE
     Indication: ATRIAL FIBRILLATION
     Dosage: 200 MG, DAILY
     Route: 048
     Dates: start: 20141022, end: 20141121

REACTIONS (9)
  - Respiratory failure [Fatal]
  - Large intestine perforation [Not Recovered/Not Resolved]
  - Pneumothorax [Not Recovered/Not Resolved]
  - Volvulus [Not Recovered/Not Resolved]
  - Cerebral infarction [Not Recovered/Not Resolved]
  - Interstitial lung disease [Fatal]
  - Cardiogenic shock [Fatal]
  - Left ventricular failure [Fatal]
  - Critical illness polyneuropathy [Not Recovered/Not Resolved]

NARRATIVE: CASE EVENT DATE: 20141112
